FAERS Safety Report 6401058-0 (Version None)
Quarter: 2009Q4

REPORT INFORMATION
  Report Type: 
  Country: None (occurrence: None)
  Receive Date: 20091009
  Receipt Date: 20091009
  Transmission Date: 20100525
  Serious: Yes (Life-Threatening)
  Sender: FDA-Public Use
  Company Number: None

PATIENT
  Age: 42 Year
  Sex: Female
  Weight: 90.2658 kg

DRUGS (1)
  1. MUCINEX DM [Suspect]
     Indication: POSTNASAL DRIP
     Dosage: 2 PILLS 1 TIME PO
     Route: 048
     Dates: start: 20091007, end: 20091008

REACTIONS (6)
  - DISCOMFORT [None]
  - DIZZINESS [None]
  - FEELING ABNORMAL [None]
  - PRESYNCOPE [None]
  - THIRST [None]
  - VOMITING [None]
